FAERS Safety Report 6071824-2 (Version None)
Quarter: 2009Q1

REPORT INFORMATION
  Report Type: 
  Country: None (occurrence: None)
  Receive Date: 20090210
  Receipt Date: 20090203
  Transmission Date: 20090719
  Serious: Yes (Death, Other)
  Sender: FDA-Public Use
  Company Number: PHHY2008US32071

PATIENT
  Sex: Male

DRUGS (5)
  1. CLOZARIL [Suspect]
     Dosage: 100 MG, QHS
     Route: 048
  2. DEPAKOTE [Concomitant]
     Dosage: 500 MG, 3 QHS
     Route: 048
     Dates: end: 20081101
  3. ZYPREXA [Concomitant]
     Dosage: 20 MG, QHS
     Route: 048
     Dates: end: 20081101
  4. COREG [Concomitant]
     Route: 048
  5. OXYGEN [Concomitant]

REACTIONS (5)
  - ACCIDENT [None]
  - CARDIAC ARREST [None]
  - CARDIAC FAILURE [None]
  - CARDIOMYOPATHY [None]
  - PNEUMONIA VIRAL [None]
